FAERS Safety Report 4610083-1 (Version None)
Quarter: 2005Q1

REPORT INFORMATION
  Report Type: 
  Country: None (occurrence: None)
  Receive Date: 20050316
  Receipt Date: 20050307
  Transmission Date: 20050727
  Serious: Yes (Hospitalization)
  Sender: FDA-Public Use
  Company Number: AU-SANOFI-SYNTHELABO-A01200501304

PATIENT
  Sex: Female

DRUGS (1)
  1. STILNOX [Suspect]
     Indication: SLEEP DISORDER
     Dosage: 10 MG
     Route: 048
     Dates: start: 20030605, end: 20030610

REACTIONS (2)
  - CRYING [None]
  - SCRATCH [None]
